FAERS Safety Report 7207351-6 (Version None)
Quarter: 2011Q1

REPORT INFORMATION
  Report Type: 
  Country: None (occurrence: None)
  Receive Date: 20110103
  Receipt Date: 20101223
  Transmission Date: 20110831
  Serious: Yes (Other)
  Sender: FDA-Public Use
  Company Number: US-PFIZER INC-2010179526

PATIENT
  Sex: Female
  Weight: 99.336 kg

DRUGS (7)
  1. MONTELUKAST SODIUM [Concomitant]
     Indication: ASTHMA
     Dosage: UNK
  2. METFORMIN HYDROCHLORIDE [Concomitant]
     Indication: GLYCOSYLATED HAEMOGLOBIN INCREASED
     Dosage: UNK
  3. ALBUTEROL [Concomitant]
     Indication: ASTHMA
     Dosage: UNK
  4. LAVENDER OIL [Concomitant]
     Indication: SINUS DISORDER
     Dosage: UNIT DOSE: 3 CAPS DAILY
  5. LIPITOR [Suspect]
     Indication: BLOOD CHOLESTEROL
     Dosage: 10 MG, 1X/DAY
     Route: 048
     Dates: end: 20070101
  6. CRESTOR [Suspect]
     Indication: BLOOD CHOLESTEROL
     Dosage: 5 MG, 1X/DAY
  7. CARDIZEM [Concomitant]
     Dosage: 240 MG, UNK

REACTIONS (2)
  - MEMORY IMPAIRMENT [None]
  - H1N1 INFLUENZA [None]
